FAERS Safety Report 25795029 (Version 1)
Quarter: 2025Q3

REPORT INFORMATION
  Report Type: Spontaneous
  Country: US (occurrence: US)
  Receive Date: 20250912
  Receipt Date: 20250912
  Transmission Date: 20251020
  Serious: Yes (Hospitalization)
  Sender: SANOFI AVENTIS
  Company Number: US-SANOFI-02650601

PATIENT
  Age: 2 Year
  Sex: Male

DRUGS (1)
  1. ALTUVIIIO [Suspect]
     Active Substance: EFANESOCTOCOG ALFA
     Indication: Factor VIII deficiency
     Dosage: 500 DF, QOD (500 UNITS EVERY 48 TO 72 HOURS AND IS PRESCRIBED RANGE OF 250?750 UNITS IN CASES OF BLE
     Route: 065

REACTIONS (2)
  - Haemorrhage [Unknown]
  - Product storage error [Unknown]

NARRATIVE: CASE EVENT DATE: 20250101
